FAERS Safety Report 7553581-3 (Version None)
Quarter: 2011Q2

REPORT INFORMATION
  Report Type: 
  Country: None (occurrence: None)
  Receive Date: 20110617
  Receipt Date: 20110128
  Transmission Date: 20111010
  Serious: No
  Sender: FDA-Public Use
  Company Number: US-MYLANLABS-2011S1000600

PATIENT
  Age: 77 Year
  Sex: Female

DRUGS (9)
  1. GLIPIZIDE [Suspect]
     Indication: DIABETES MELLITUS
     Route: 048
     Dates: start: 20101224, end: 20110106
  2. PROPRANOLOL [Concomitant]
  3. LIPITOR [Concomitant]
  4. LASIX [Concomitant]
  5. POTASSIUM [Concomitant]
  6. VITAMIN D [Concomitant]
  7. VITAMIN B-12 [Concomitant]
  8. MECLIZINE [Concomitant]
  9. SYNTHROID [Concomitant]

REACTIONS (2)
  - THROAT IRRITATION [None]
  - ORAL DISCOMFORT [None]
